FAERS Safety Report 13325862 (Version 1)
Quarter: 2017Q1

REPORT INFORMATION
  Report Type: Spontaneous
  Country: US (occurrence: US)
  Receive Date: 20170310
  Receipt Date: 20170310
  Transmission Date: 20170428
  Serious: Yes (Death)
  Sender: FDA-Public Use
  Company Number: US-VIFOR (INTERNATIONAL) INC.-VIT-2017-02578

PATIENT
  Age: 60 Year
  Sex: Male

DRUGS (17)
  1. VELTASSA [Suspect]
     Active Substance: PATIROMER
     Indication: HYPERKALAEMIA
     Route: 048
     Dates: start: 20161206, end: 20170302
  2. CLOPIDOGREL [Concomitant]
     Active Substance: CLOPIDOGREL BISULFATE
  3. AMLODIPINE [Concomitant]
     Active Substance: AMLODIPINE BESYLATE
  4. TRAMADOL. [Concomitant]
     Active Substance: TRAMADOL
  5. CALCITRIOL. [Concomitant]
     Active Substance: CALCITRIOL
  6. PARACETAMOL [Concomitant]
     Active Substance: ACETAMINOPHEN
  7. CALCIUM ACETATE. [Concomitant]
     Active Substance: CALCIUM ACETATE
  8. METOPROLOL. [Concomitant]
     Active Substance: METOPROLOL
  9. TAMSULOSIN [Concomitant]
     Active Substance: TAMSULOSIN
  10. CLONIDINE. [Concomitant]
     Active Substance: CLONIDINE
  11. SODIUM BICARBONATE. [Concomitant]
     Active Substance: SODIUM BICARBONATE
  12. LANTUS [Concomitant]
     Active Substance: INSULIN GLARGINE
  13. GABAPENTIN. [Concomitant]
     Active Substance: GABAPENTIN
  14. PEG [Concomitant]
     Active Substance: POLYETHYLENE GLYCOLS
  15. DIAZEPAM. [Concomitant]
     Active Substance: DIAZEPAM
  16. NOVOLOG [Concomitant]
     Active Substance: INSULIN ASPART
  17. PROMETHAZINE [Concomitant]
     Active Substance: PROMETHAZINE\PROMETHAZINE HYDROCHLORIDE

REACTIONS (1)
  - Pulmonary oedema [Fatal]

NARRATIVE: CASE EVENT DATE: 20170302
